FAERS Safety Report 5347621-X (Version None)
Quarter: 2007Q2

REPORT INFORMATION
  Report Type: 
  Country: None (occurrence: None)
  Receive Date: 20070604
  Receipt Date: 20070604
  Transmission Date: 20071010
  Serious: Yes (Life-Threatening)
  Sender: FDA-Public Use
  Company Number: None

PATIENT
  Age: 25 Year
  Sex: Female
  Weight: 49.8957 kg

DRUGS (2)
  1. SARAFEM [Suspect]
     Indication: PROPHYLAXIS
     Dates: start: 20020901, end: 20030124
  2. SARAFEM [Suspect]
     Indication: STRESS
     Dates: start: 20020901, end: 20030124

REACTIONS (6)
  - ANOREXIA [None]
  - FEELING ABNORMAL [None]
  - INSOMNIA [None]
  - IRRITABILITY [None]
  - SUICIDAL IDEATION [None]
  - WEIGHT DECREASED [None]
